FAERS Safety Report 9458596 (Version 2)
Quarter: 2013Q3

REPORT INFORMATION
  Report Type: Spontaneous
  Country: US (occurrence: None)
  Receive Date: 20130812
  Receipt Date: 20130911
  Transmission Date: 20140515
  Serious: Yes (Other)
  Sender: FDA-Public Use
  Company Number: 2013US002230

PATIENT
  Age: 63 Year
  Sex: Male
  Weight: 69 kg

DRUGS (5)
  1. ICLUSIG [Suspect]
     Indication: CHRONIC MYELOID LEUKAEMIA
     Route: 048
     Dates: start: 20130515
  2. COLACE [Concomitant]
  3. MARINOL [Concomitant]
  4. OXYCODONE (OXYCODONE) [Concomitant]
  5. ZOFRAN (ONDANSETRON) [Concomitant]

REACTIONS (3)
  - Convulsion [None]
  - Aggression [None]
  - Postictal state [None]
